FAERS Safety Report 4454613-1 (Version None)
Quarter: 2004Q3

REPORT INFORMATION
  Report Type: 
  Country: None (occurrence: None)
  Receive Date: 20040920
  Receipt Date: 20040920
  Transmission Date: 20050211
  Serious: No
  Sender: FDA-Public Use
  Company Number: None

PATIENT
  Sex: Female
  Weight: 66.6788 kg

DRUGS (2)
  1. PAXIL [Suspect]
     Indication: ANXIETY
     Dosage: 75 MG ONCE A DAY ORAL
     Route: 048
     Dates: start: 19990801, end: 20040901
  2. PAXIL [Suspect]
     Indication: DEPRESSION
     Dosage: 75 MG ONCE A DAY ORAL
     Route: 048
     Dates: start: 19990801, end: 20040901

REACTIONS (4)
  - CHEST PAIN [None]
  - DEPRESSION [None]
  - DRUG WITHDRAWAL SYNDROME [None]
  - HOT FLUSH [None]
